FAERS Safety Report 5218188-1 (Version None)
Quarter: 2007Q1

REPORT INFORMATION
  Report Type: 
  Country: None (occurrence: None)
  Receive Date: 20061130
  Receipt Date: 20060822
  Transmission Date: 20070707
  Serious: Yes (Hospitalization)
  Sender: FDA-Public Use
  Company Number: US200603000281

PATIENT
  Age: 42 Year
  Sex: Male
  Weight: 99.8 kg

DRUGS (18)
  1. ZYPREXA [Suspect]
     Dosage: SEE IMAGE
     Dates: start: 20030101, end: 20030501
  2. ZYPREXA [Suspect]
     Dosage: SEE IMAGE
     Dates: start: 20030301, end: 20040601
  3. ZYPREXA [Suspect]
     Dosage: SEE IMAGE
     Dates: start: 20040601, end: 20040701
  4. ZYPREXA [Suspect]
     Dosage: SEE IMAGE
     Dates: start: 20050106, end: 20050108
  5. ZYPREXA [Suspect]
     Dosage: SEE IMAGE
     Dates: start: 20021201, end: 20050901
  6. ZYPREXA [Suspect]
     Dosage: SEE IMAGE
     Dates: start: 20030401
  7. QUETIAPINE FUMARATE [Concomitant]
  8. XANAX /USA/ (ALPRAZOLAM) [Concomitant]
  9. CHLORDIAZEPOXIDE [Concomitant]
  10. SERAX [Concomitant]
  11. MIRTAZAPINE [Concomitant]
  12. AMITRIPTYLINE HCL [Concomitant]
  13. LEXAPRO /USA/ (ESCITALOPRAM) [Concomitant]
  14. TRAZODIL (TRAZODONE HYDROCHLORIDE) [Concomitant]
  15. TRIZIVIR /UNK/ (ABACAVIR SULFATE, LAMIVUDINE, ZIDOVUDINE) [Concomitant]
  16. COMBIVIR [Concomitant]
  17. SUSTIVA /CAN/ (EFAVIRENZ) [Concomitant]
  18. ATENOLOL [Concomitant]

REACTIONS (3)
  - DIABETES MELLITUS [None]
  - PRESCRIBED OVERDOSE [None]
  - WEIGHT INCREASED [None]
